FAERS Safety Report 16144617 (Version 1)
Quarter: 2019Q2

REPORT INFORMATION
  Report Type: Spontaneous
  Country: BR (occurrence: BR)
  Receive Date: 20190402
  Receipt Date: 20190402
  Transmission Date: 20190711
  Serious: Yes (Other)
  Sender: FDA-Public Use
  Company Number: BR-ROCHE-2293713

PATIENT
  Age: 41 Year
  Sex: Female

DRUGS (1)
  1. MABTHERA [Suspect]
     Active Substance: RITUXIMAB
     Indication: NEUROMYELITIS OPTICA SPECTRUM DISORDER
     Route: 065
     Dates: start: 2016

REACTIONS (6)
  - Head discomfort [Unknown]
  - Tachycardia [Unknown]
  - Blindness [Unknown]
  - Abdominal pain [Unknown]
  - Off label use [Unknown]
  - Intentional product use issue [Unknown]
